FAERS Safety Report 4518134-X (Version None)
Quarter: 2004Q4

REPORT INFORMATION
  Report Type: 
  Country: None (occurrence: None)
  Receive Date: 20041130
  Receipt Date: 20041115
  Transmission Date: 20050328
  Serious: Yes (Hospitalization)
  Sender: FDA-Public Use
  Company Number: A01200405788

PATIENT
  Age: 66 Year
  Sex: Male

DRUGS (6)
  1. CLOPIDOGREL - TABLET - 75 MG [Suspect]
     Indication: CEREBROVASCULAR ACCIDENT
     Dosage: 75 MG OD ORAL
     Route: 048
     Dates: end: 20041017
  2. AMLODIPINE [Concomitant]
  3. ATENOLOL [Concomitant]
  4. BENDROFLUMETHIAZIDE [Concomitant]
  5. OMEPRAZOLE [Concomitant]
  6. CYCLIZINE [Concomitant]

REACTIONS (9)
  - BLOOD CREATININE INCREASED [None]
  - BLOOD SODIUM INCREASED [None]
  - BLOOD UREA INCREASED [None]
  - HAEMATEMESIS [None]
  - HAEMOGLOBIN INCREASED [None]
  - MALLORY-WEISS SYNDROME [None]
  - OESOPHAGITIS [None]
  - THROMBOSIS [None]
  - ULCER [None]
